FAERS Safety Report 8704802 (Version 6)
Quarter: 2012Q4

REPORT INFORMATION
  Report Type: 
  Country: US (occurrence: US)
  Receive Date: 20120803
  Receipt Date: 20121029
  Transmission Date: 20130627
  Serious: Yes (Hospitalization)
  Sender: FDA-Public Use
  Company Number: US-GLAXOSMITHKLINE-A0981550A

PATIENT
  Age: 69 Year
  Sex: Female

DRUGS (12)
  1. ADVAIR [Suspect]
     Indication: CHRONIC OBSTRUCTIVE PULMONARY DISEASE
     Dosage: 1PUFF Twice per day
     Route: 055
     Dates: start: 20111012
  2. SINGULAIR [Concomitant]
  3. SPIRIVA [Concomitant]
  4. FLUTICASONE [Concomitant]
  5. GLIPIZIDE [Concomitant]
  6. ALLOPURINOL [Concomitant]
  7. OXYGEN [Concomitant]
  8. ECOTRIN [Concomitant]
  9. ENALAPRIL [Concomitant]
  10. DILTIAZEM [Concomitant]
  11. IMDUR [Concomitant]
  12. NEXIUM [Concomitant]

REACTIONS (10)
  - Pneumonia [Recovering/Resolving]
  - Blindness unilateral [Unknown]
  - Bronchitis [Recovering/Resolving]
  - Sinusitis [Recovering/Resolving]
  - Umbilical hernia [Unknown]
  - Neoplasm [Unknown]
  - Cataract [Unknown]
  - Gastrointestinal disorder [Unknown]
  - Chronic sinusitis [Unknown]
  - Dysphonia [Unknown]
